FAERS Safety Report 18092225 (Version 1)
Quarter: 2020Q3

REPORT INFORMATION
  Report Type: Spontaneous
  Country: US (occurrence: US)
  Receive Date: 20200730
  Receipt Date: 20200730
  Transmission Date: 20201103
  Serious: No
  Sender: FDA-Public Use
  Company Number: None

PATIENT
  Age: 72 Day
  Sex: Female
  Weight: 54.9 kg

DRUGS (9)
  1. SUTENT [Suspect]
     Active Substance: SUNITINIB MALATE
     Indication: GASTROINTESTINAL STROMAL TUMOUR
     Route: 048
     Dates: start: 20200706
  2. ASCORBIC ACID. [Concomitant]
     Active Substance: ASCORBIC ACID
  3. UBIQUINOL [Concomitant]
     Active Substance: UBIQUINOL
  4. OXYCODONE 5MG [Concomitant]
     Active Substance: OXYCODONE
  5. HYDROCODONE?APAP 5?325MG [Concomitant]
  6. SENNA?DOCUSATE [Concomitant]
     Active Substance: DOCUSATE SODIUM\SENNOSIDES
  7. OMPERAZOLE 20MG [Concomitant]
  8. ONDANSETRON 4MG [Concomitant]
     Active Substance: ONDANSETRON
  9. MULTIVITAMIN [Concomitant]
     Active Substance: VITAMINS

REACTIONS (1)
  - Diarrhoea [None]

NARRATIVE: CASE EVENT DATE: 20200730
